FAERS Safety Report 4650623-X (Version None)
Quarter: 2005Q2

REPORT INFORMATION
  Report Type: 
  Country: None (occurrence: None)
  Receive Date: 20050503
  Receipt Date: 20041021
  Transmission Date: 20051028
  Serious: Yes (Other)
  Sender: FDA-Public Use
  Company Number: PHBS2004BR13975

PATIENT
  Age: 74 Year
  Sex: Male

DRUGS (16)
  1. RADIATION THERAPY [Concomitant]
     Dosage: 30 GY (10X300)
     Route: 065
     Dates: start: 20040908, end: 20040921
  2. CHEMOTHERAPEUTICS,OTHER [Concomitant]
     Route: 065
  3. METADON [Concomitant]
     Route: 065
  4. OXYLOMIN [Concomitant]
     Route: 065
  5. GABAPENTIN [Concomitant]
     Route: 065
  6. LACTULOSE [Concomitant]
     Route: 065
  7. BENZALKONIUM CHLORIDE [Concomitant]
     Route: 065
  8. VITAMIN B-12 [Concomitant]
     Route: 065
  9. DXT [Concomitant]
     Route: 065
  10. TOFRANIL [Concomitant]
     Route: 065
  11. AMITRIL [Concomitant]
     Route: 065
  12. OMEPRAZOLE [Concomitant]
     Route: 065
  13. AMPLICTIL [Concomitant]
     Route: 065
  14. PROLEUKIN [Concomitant]
     Dosage: 9.000.000 (2 CYCLES/4 DAYS)
     Route: 065
     Dates: start: 20030616, end: 20030723
  15. INTERFERON ALFA [Concomitant]
     Dosage: 9000 IU, QW3
     Dates: start: 20030915, end: 20040616
  16. ZOMETA [Suspect]
     Dosage: 4 MG, QMO
     Route: 042
     Dates: start: 20030919, end: 20050314

REACTIONS (5)
  - ASEPTIC NECROSIS BONE [None]
  - BONE DEBRIDEMENT [None]
  - BONE TRIMMING [None]
  - PROSTHESIS USER [None]
  - TOOTH EXTRACTION [None]
